FAERS Safety Report 17529813 (Version 1)
Quarter: 2020Q1

REPORT INFORMATION
  Report Type: Spontaneous
  Country: US (occurrence: US)
  Receive Date: 20200311
  Receipt Date: 20200311
  Transmission Date: 20200409
  Serious: No
  Sender: FDA-Public Use
  Company Number: NVSC2020US068422

PATIENT
  Sex: Female

DRUGS (1)
  1. ZARZIO [Suspect]
     Active Substance: FILGRASTIM
     Indication: PRODUCT USED FOR UNKNOWN INDICATION
     Dosage: 300MCG/0.5ML, QW
     Route: 058
     Dates: start: 20190901

REACTIONS (6)
  - Feeling abnormal [Unknown]
  - Confusional state [Unknown]
  - Headache [Unknown]
  - White blood cell count decreased [Unknown]
  - Myalgia [Unknown]
  - Disorientation [Unknown]
